FAERS Safety Report 24015537 (Version 1)
Quarter: 2024Q2

REPORT INFORMATION
  Report Type: Spontaneous
  Country: US (occurrence: None)
  Receive Date: 20240626
  Receipt Date: 20240626
  Transmission Date: 20240715
  Serious: No
  Sender: FDA-Public Use
  Company Number: None

PATIENT
  Age: 67 Year
  Sex: Female

DRUGS (1)
  1. AMBRISENTAN [Suspect]
     Active Substance: AMBRISENTAN
     Indication: Pulmonary arterial hypertension
     Dosage: 5 MG DAILY ORAL
     Route: 048

REACTIONS (9)
  - Sputum increased [None]
  - Dyspnoea [None]
  - Walking aid user [None]
  - Sleep disorder [None]
  - Fear [None]
  - Asthenia [None]
  - Eating disorder [None]
  - Depression [None]
  - Pain [None]

NARRATIVE: CASE EVENT DATE: 20240626
